FAERS Safety Report 4697972-7 (Version None)
Quarter: 2005Q2

REPORT INFORMATION
  Report Type: 
  Country: None (occurrence: None)
  Receive Date: 20050622
  Receipt Date: 20050622
  Transmission Date: 20051028
  Serious: Yes (Other)
  Sender: FDA-Public Use
  Company Number: None

PATIENT
  Sex: Male
  Weight: 94 kg

DRUGS (1)
  1. PENTOSTATIN [Suspect]
     Indication: GRAFT VERSUS HOST DISEASE
     Dosage: 4 MG/M2 IV OVER 20-30 MINUTES EVERY 2 WEEKS
     Route: 042
     Dates: start: 20050610

REACTIONS (5)
  - BIOPSY LIVER ABNORMAL [None]
  - BLOOD BILIRUBIN INCREASED [None]
  - BLOOD GLUCOSE FLUCTUATION [None]
  - CHOLELITHIASIS [None]
  - GRAFT VERSUS HOST DISEASE [None]
